FAERS Safety Report 6215478-0 (Version None)
Quarter: 2009Q2

REPORT INFORMATION
  Report Type: 
  Country: None (occurrence: None)
  Receive Date: 20090603
  Receipt Date: 20090525
  Transmission Date: 20091009
  Serious: Yes (Other)
  Sender: FDA-Public Use
  Company Number: GXKR2009GB06061

PATIENT
  Age: 42 Year
  Sex: Male

DRUGS (6)
  1. ESTRADIOL [Suspect]
     Indication: FEMINISATION ACQUIRED
     Dosage: 100 MG/DAY; TRANSDERMAL
     Route: 062
  2. ESTRADIOL [Suspect]
     Indication: OFF LABEL USE
     Dosage: 100 MG/DAY; TRANSDERMAL
     Route: 062
  3. SPIRONOLACTONE [Suspect]
     Indication: FEMINISATION ACQUIRED
     Dosage: 200 MG/DAY, ORAL
     Route: 048
  4. SPIRONOLACTONE [Suspect]
     Indication: OFF LABEL USE
     Dosage: 200 MG/DAY, ORAL
     Route: 048
  5. ETHINYL ESTRADIOL TAB [Suspect]
     Indication: FEMINISATION ACQUIRED
     Dosage: 30 UG/DAY; ORAL
     Route: 048
  6. ETHINYL ESTRADIOL TAB [Suspect]
     Indication: OFF LABEL USE
     Dosage: 30 UG/DAY; ORAL
     Route: 048

REACTIONS (3)
  - DIZZINESS [None]
  - GYNAECOMASTIA [None]
  - PULMONARY EMBOLISM [None]
